FAERS Safety Report 11320632 (Version 2)
Quarter: 2015Q3

REPORT INFORMATION
  Report Type: Spontaneous
  Country: JP (occurrence: JP)
  Receive Date: 20150729
  Receipt Date: 20150805
  Transmission Date: 20151125
  Serious: Yes (Death)
  Sender: FDA-Public Use
  Company Number: JP-ELI_LILLY_AND_COMPANY-JP201507009532

PATIENT
  Sex: Male
  Weight: .51 kg

DRUGS (1)
  1. HUMULIN R [Suspect]
     Active Substance: INSULIN HUMAN
     Indication: NEONATAL DIABETES MELLITUS
     Dosage: 2.5 IU, QD
     Route: 042
     Dates: start: 20130120, end: 20130212

REACTIONS (2)
  - Pneumonia bacterial [Fatal]
  - Sepsis neonatal [Fatal]
